FAERS Safety Report 5473305-3 (Version None)
Quarter: 2007Q4

REPORT INFORMATION
  Report Type: 
  Country: None (occurrence: None)
  Receive Date: 20071001
  Receipt Date: 20070925
  Transmission Date: 20080405
  Serious: Yes (Hospitalization)
  Sender: FDA-Public Use
  Company Number: FR-AMGEN-US245260

PATIENT
  Age: 46 Year
  Sex: Male

DRUGS (4)
  1. ENBREL [Suspect]
     Indication: ANKYLOSING SPONDYLITIS
     Dosage: PREFILLED SYRINGE 50 MG ONCE WEEKLY
     Route: 058
     Dates: start: 20070101, end: 20070101
  2. ENBREL [Suspect]
     Dosage: PREFILLED SYRINGE 50 MG ONCE WEEKLY
     Route: 058
     Dates: start: 20070801
  3. ENBREL [Suspect]
     Dosage: LYOPHILIZED 50 MG ONCE WEEKLY
     Route: 058
     Dates: start: 20060726, end: 20070101
  4. LANSOPRAZOLE [Concomitant]
     Dosage: UNKNOWN
     Route: 048

REACTIONS (1)
  - CROHN'S DISEASE [None]
